FAERS Safety Report 4284056-5 (Version None)
Quarter: 2004Q1

REPORT INFORMATION
  Report Type: 
  Country: None (occurrence: None)
  Receive Date: 20040203
  Receipt Date: 20031007
  Transmission Date: 20041129
  Serious: Yes (Life-Threatening, Hospitalization, Disabling)
  Sender: FDA-Public Use
  Company Number: JP-BRISTOL-MYERS SQUIBB COMPANY-12411724

PATIENT
  Age: 52 Year
  Sex: Male

DRUGS (20)
  1. GATIFLO [Suspect]
     Indication: RESPIRATORY TRACT INFECTION
     Dosage: 100 MG TABLET
     Route: 048
     Dates: start: 20030908, end: 20030915
  2. GATIFLO [Suspect]
     Indication: NASOPHARYNGITIS
     Dosage: 100 MG TABLET
     Route: 048
     Dates: start: 20030908, end: 20030915
  3. METILON [Concomitant]
     Route: 051
  4. LIPANTIL [Concomitant]
     Route: 048
     Dates: start: 19990617
  5. LIPITOR [Concomitant]
     Route: 048
     Dates: start: 19990617
  6. PONTAL [Concomitant]
     Route: 048
     Dates: start: 20030908, end: 20030922
  7. MIYA-BM [Concomitant]
     Route: 048
     Dates: start: 20030908
  8. SULPYRINE [Concomitant]
     Route: 048
     Dates: start: 20030908
  9. CODEINE PHOSPHATE [Concomitant]
     Indication: NASOPHARYNGITIS
  10. ELIETEN [Concomitant]
  11. KOLANTYL [Concomitant]
  12. BENZBROMARONE [Concomitant]
     Route: 048
     Dates: start: 19990617
  13. AMBROXOL [Concomitant]
     Route: 048
     Dates: start: 20030908, end: 20030922
  14. CHLORPHENIRAMINE MALEATE [Concomitant]
     Route: 048
     Dates: start: 20030908
  15. METHYLEPHEDRINE HCL [Concomitant]
     Route: 048
     Dates: start: 20030908
  16. DIGESTIVE ENZYMES [Concomitant]
  17. LAMISIL [Concomitant]
     Route: 048
     Dates: start: 20030716, end: 20030922
  18. THEO-DUR [Concomitant]
     Route: 048
     Dates: start: 20030908, end: 20030922
  19. ALLEGRA [Concomitant]
     Route: 048
     Dates: start: 20030624, end: 20030908
  20. FAMOTIDINE [Concomitant]

REACTIONS (2)
  - DIABETES MELLITUS [None]
  - HYPERGLYCAEMIA [None]
